FAERS Safety Report 11685980 (Version 1)
Quarter: 2015Q4

REPORT INFORMATION
  Report Type: Spontaneous
  Country: FR (occurrence: FR)
  Receive Date: 20151030
  Receipt Date: 20151030
  Transmission Date: 20160304
  Serious: Yes (Other)
  Sender: FDA-Public Use
  Company Number: FR-NOVOPROD-444758

PATIENT
  Age: 53 Year
  Sex: Female
  Weight: 100 kg

DRUGS (1)
  1. VICTOZA [Suspect]
     Active Substance: LIRAGLUTIDE
     Indication: TYPE 2 DIABETES MELLITUS
     Dosage: 1.2 MG, QD
     Route: 058
     Dates: start: 201412, end: 201503

REACTIONS (1)
  - Injection site eczema [Recovered/Resolved with Sequelae]

NARRATIVE: CASE EVENT DATE: 201501
